FAERS Safety Report 19956292 (Version 5)
Quarter: 2022Q4

REPORT INFORMATION
  Report Type: Spontaneous
  Country: US (occurrence: US)
  Receive Date: 20211014
  Receipt Date: 20221104
  Transmission Date: 20230113
  Serious: No
  Sender: FDA-Public Use
  Company Number: US-PFIZER INC-202101198834

PATIENT
  Age: 52 Year
  Sex: Male

DRUGS (7)
  1. XELJANZ [Suspect]
     Active Substance: TOFACITINIB CITRATE
     Indication: Rheumatoid arthritis
     Dosage: 5 MG, 2X/DAY (TWICE A DAY)
     Route: 048
     Dates: start: 202109
  2. FOLIC ACID [Concomitant]
     Active Substance: FOLIC ACID
     Dosage: UNK
  3. PREDNISONE [Concomitant]
     Active Substance: PREDNISONE
     Dosage: 2.5 MG
  4. PREDNISONE [Concomitant]
     Active Substance: PREDNISONE
     Dosage: 7.5 MG, DAILY
  5. METHOTREXATE [Concomitant]
     Active Substance: METHOTREXATE
     Dosage: UNK
  6. VALSARTAN [Concomitant]
     Active Substance: VALSARTAN
     Dosage: UNK
  7. HYDROCHLOROTHIAZIDE [Concomitant]
     Active Substance: HYDROCHLOROTHIAZIDE
     Dosage: 12.5 MG, 1X/DAY (2 WEEKS AGO)

REACTIONS (13)
  - Dizziness [Unknown]
  - Limb discomfort [Unknown]
  - Muscle atrophy [Unknown]
  - Weight decreased [Unknown]
  - Hypertension [Unknown]
  - Osteoarthritis [Unknown]
  - Cough [Not Recovered/Not Resolved]
  - Abnormal dreams [Unknown]
  - Ocular hyperaemia [Unknown]
  - Ligament sprain [Unknown]
  - Loss of personal independence in daily activities [Unknown]
  - Blood pressure increased [Not Recovered/Not Resolved]
  - Discouragement [Unknown]

NARRATIVE: CASE EVENT DATE: 20210101
